FAERS Safety Report 24862518 (Version 1)
Quarter: 2025Q1

REPORT INFORMATION
  Report Type: Spontaneous
  Country: CN (occurrence: CN)
  Receive Date: 20250120
  Receipt Date: 20250120
  Transmission Date: 20250409
  Serious: Yes (Other)
  Sender: ROCHE
  Company Number: CN-ROCHE-10000177914

PATIENT

DRUGS (3)
  1. OSELTAMIVIR [Suspect]
     Active Substance: OSELTAMIVIR
     Indication: Product used for unknown indication
     Route: 065
  2. IBUPROFEN [Concomitant]
     Active Substance: IBUPROFEN
  3. CETIRIZINE [Concomitant]
     Active Substance: CETIRIZINE HYDROCHLORIDE

REACTIONS (14)
  - Vomiting [Unknown]
  - Headache [Unknown]
  - Hypoaesthesia [Unknown]
  - Pyrexia [Unknown]
  - Crying [Unknown]
  - Mental disorder [Unknown]
  - Hyperpyrexia [Unknown]
  - Abdominal pain [Unknown]
  - Hyperhidrosis [Unknown]
  - Disorganised speech [Unknown]
  - Diarrhoea [Recovered/Resolved]
  - Myalgia [Unknown]
  - Somnolence [Unknown]
  - Hypersensitivity [Unknown]
